FAERS Safety Report 12271635 (Version 2)
Quarter: 2016Q2

REPORT INFORMATION
  Report Type: Report from Study
  Country: DE (occurrence: DE)
  Receive Date: 20160415
  Receipt Date: 20160426
  Transmission Date: 20160815
  Serious: Yes (Hospitalization, Other)
  Sender: FDA-Public Use
  Company Number: PHHY2016DE048077

PATIENT
  Age: 38 Year
  Sex: Female

DRUGS (4)
  1. L-THYROX [Concomitant]
     Active Substance: LEVOTHYROXINE SODIUM
     Indication: PRODUCT USED FOR UNKNOWN INDICATION
     Dosage: 25 UG, QD
     Route: 065
  2. AMLODIPINE [Concomitant]
     Active Substance: AMLODIPINE BESYLATE
     Indication: PRODUCT USED FOR UNKNOWN INDICATION
     Dosage: 5 MG, QD
     Route: 065
  3. GILENYA [Suspect]
     Active Substance: FINGOLIMOD HYDROCHLORIDE
     Indication: MULTIPLE SCLEROSIS
     Dosage: 0.5 MG, QD
     Route: 048
     Dates: start: 20140611
  4. ACICLOVIR [Suspect]
     Active Substance: ACYCLOVIR
     Indication: HERPES ZOSTER INFECTION NEUROLOGICAL
     Dosage: 750 MG, TID
     Route: 042

REACTIONS (14)
  - Eye movement disorder [Unknown]
  - Nausea [Unknown]
  - Hypertensive crisis [Unknown]
  - Blood pressure increased [Unknown]
  - Vomiting [Unknown]
  - Polyneuropathy [Unknown]
  - Hypoglossal nerve paralysis [Unknown]
  - Ear pain [Unknown]
  - Multiple sclerosis relapse [Unknown]
  - Facial paralysis [Unknown]
  - Liver function test increased [Unknown]
  - Otorrhoea [Unknown]
  - Paraesthesia [Unknown]
  - Herpes zoster infection neurological [Unknown]

NARRATIVE: CASE EVENT DATE: 2015
